FAERS Safety Report 6704702-3 (Version None)
Quarter: 2010Q2

REPORT INFORMATION
  Report Type: 
  Country: None (occurrence: None)
  Receive Date: 20100430
  Receipt Date: 20100426
  Transmission Date: 20101027
  Serious: Yes (Other)
  Sender: FDA-Public Use
  Company Number: US-BAYER-201011381BCC

PATIENT
  Age: 71 Year
  Sex: Male
  Weight: 77 kg

DRUGS (10)
  1. ALEVE (CAPLET) [Suspect]
     Indication: ARTHRALGIA
     Dosage: TOTAL DAILY DOSE: 880 MG  UNIT DOSE: 220 MG
     Route: 048
     Dates: start: 20100121, end: 20100101
  2. COUMADIN [Concomitant]
     Route: 065
  3. CARDOSIN [Concomitant]
     Route: 065
  4. WARFARIN SODIUM [Concomitant]
     Route: 065
  5. DIGOXIN [Concomitant]
     Route: 065
  6. CHLORESTERA [Concomitant]
     Route: 065
  7. UREXOFOL [Concomitant]
     Route: 065
  8. ONE A DAY VITAMINS [Concomitant]
     Route: 065
  9. NEXTEL [Concomitant]
     Indication: INTESTINAL ULCER
     Route: 065
  10. SULFA DRUG [Concomitant]
     Indication: URINARY TRACT DISORDER
     Route: 065

REACTIONS (5)
  - ANXIETY [None]
  - FEELING ABNORMAL [None]
  - GASTROINTESTINAL ULCER [None]
  - INSOMNIA [None]
  - NIGHTMARE [None]
